FAERS Safety Report 23620613 (Version 2)
Quarter: 2024Q1

REPORT INFORMATION
  Report Type: Spontaneous
  Country: CZ (occurrence: CZ)
  Receive Date: 20240312
  Receipt Date: 20240329
  Transmission Date: 20240410
  Serious: Yes (Other)
  Sender: FDA-Public Use
  Company Number: CZ-009507513-2403CZE002895

PATIENT
  Sex: Female

DRUGS (2)
  1. KEYTRUDA [Suspect]
     Active Substance: PEMBROLIZUMAB
     Dosage: CYCLICAL, CYCLE 1 OF NEOADJUVANT THERAPY
  2. KEYTRUDA [Suspect]
     Active Substance: PEMBROLIZUMAB
     Dosage: CYCLICAL, CYCLE 2 OF NEOADJUVANT THERAPY

REACTIONS (1)
  - Hepatotoxicity [Unknown]
